FAERS Safety Report 10084235 (Version 3)
Quarter: 2014Q3

REPORT INFORMATION
  Report Type: Spontaneous
  Country: US (occurrence: None)
  Receive Date: 20140415
  Receipt Date: 20140818
  Transmission Date: 20150326
  Serious: Yes (Other)
  Sender: FDA-Public Use
  Company Number: 2014-US-004179

PATIENT
  Age: 30 Year
  Sex: Female
  Weight: 72.6 kg

DRUGS (2)
  1. XYREM [Suspect]
     Active Substance: SODIUM OXYBATE
     Indication: SLEEP DISORDER
     Route: 048
     Dates: start: 200511, end: 2005
  2. NORCO (HYDROCODONE BITARTRATE, PARACETAMOL) [Concomitant]

REACTIONS (7)
  - Off label use [None]
  - Anxiety [None]
  - Hip surgery [None]
  - Road traffic accident [None]
  - Insomnia [None]
  - Ligament disorder [None]
  - Cartilage injury [None]

NARRATIVE: CASE EVENT DATE: 2008
